FAERS Safety Report 25424900 (Version 1)
Quarter: 2025Q2

REPORT INFORMATION
  Report Type: Spontaneous
  Country: CN (occurrence: CN)
  Receive Date: 20250611
  Receipt Date: 20250611
  Transmission Date: 20250716
  Serious: Yes (Hospitalization)
  Sender: NOVARTIS
  Company Number: CN-002147023-NVSC2025CN091134

PATIENT
  Age: 62 Year
  Sex: Female
  Weight: 60 kg

DRUGS (1)
  1. CARBAMAZEPINE [Suspect]
     Active Substance: CARBAMAZEPINE
     Indication: Trigeminal neuralgia
     Dosage: 400 MG, QD
     Route: 048
     Dates: start: 20250529, end: 20250529

REACTIONS (6)
  - Rash [Unknown]
  - Erythema [Unknown]
  - Blister [Unknown]
  - Papule [Unknown]
  - Necrosis [Unknown]
  - Effusion [Unknown]

NARRATIVE: CASE EVENT DATE: 20250530
